FAERS Safety Report 11411943 (Version 2)
Quarter: 2015Q3

REPORT INFORMATION
  Report Type: Spontaneous
  Country: US (occurrence: US)
  Receive Date: 20150821
  Receipt Date: 20150903
  Transmission Date: 20151125
  Serious: No
  Sender: FDA-Public Use
  Company Number: US-ELI_LILLY_AND_COMPANY-US201112007680

PATIENT
  Age: 0 Year
  Sex: Female
  Weight: 2.72 kg

DRUGS (6)
  1. HUMALOG [Suspect]
     Active Substance: INSULIN LISPRO
     Indication: TYPE 2 DIABETES MELLITUS
     Dosage: 6 U, TID
     Route: 064
     Dates: start: 20101210, end: 20110622
  2. HUMULIN N [Suspect]
     Active Substance: INSULIN HUMAN
     Indication: TYPE 2 DIABETES MELLITUS
     Dosage: 15 U, WEEKLY (1/W)
     Route: 064
     Dates: start: 20111210
  3. HUMULIN N [Suspect]
     Active Substance: INSULIN HUMAN
     Indication: TYPE 2 DIABETES MELLITUS
     Dosage: 15 U, WEEKLY (1/W)
     Route: 064
     Dates: start: 20111210
  4. HUMALOG [Suspect]
     Active Substance: INSULIN LISPRO
     Indication: TYPE 2 DIABETES MELLITUS
     Dosage: 6 U, TID
     Route: 064
     Dates: start: 20101210, end: 20110622
  5. PRENATAL [Concomitant]
     Active Substance: VITAMINS
     Dosage: UNK, QD
     Route: 064
  6. PRENATAL [Concomitant]
     Active Substance: VITAMINS
     Dosage: UNK, QD
     Route: 064

REACTIONS (3)
  - Foetal exposure during pregnancy [Recovered/Resolved]
  - Exposure during breast feeding [Recovered/Resolved]
  - Jaundice neonatal [Unknown]

NARRATIVE: CASE EVENT DATE: 20101210
